FAERS Safety Report 10257966 (Version 1)
Quarter: 2014Q2

REPORT INFORMATION
  Report Type: Spontaneous
  Country: US (occurrence: US)
  Receive Date: 20140625
  Receipt Date: 20140625
  Transmission Date: 20141212
  Serious: No
  Sender: FDA-Public Use
  Company Number: US-BAYER-2014-095069

PATIENT
  Age: 76 Year
  Sex: Male
  Weight: 99.32 kg

DRUGS (5)
  1. ALEVE CAPLET [Suspect]
     Indication: ANALGESIC THERAPY
     Dosage: 1 DF, QD
     Route: 048
     Dates: start: 201306
  2. BAYER ASPIRIN REGIMEN ADULT LOW STRENGTH [Concomitant]
  3. DIGOXIN [Concomitant]
  4. SOTALOL [Concomitant]
  5. WARFARIN [Concomitant]

REACTIONS (1)
  - Incorrect drug administration duration [None]
